FAERS Safety Report 6621087-1 (Version None)
Quarter: 2010Q1

REPORT INFORMATION
  Report Type: 
  Country: None (occurrence: None)
  Receive Date: 20100309
  Receipt Date: 20100302
  Transmission Date: 20100710
  Serious: Yes (Other)
  Sender: FDA-Public Use
  Company Number: B0636825A

PATIENT
  Age: 79 Year
  Sex: Male

DRUGS (10)
  1. LAMOTRIGINE [Suspect]
     Dosage: 25MG PER DAY
     Route: 048
     Dates: start: 20091214, end: 20100101
  2. LAMOTRIGINE [Suspect]
     Route: 048
  3. ARICEPT [Suspect]
     Dosage: 5MG PER DAY
     Route: 048
     Dates: start: 20091114, end: 20100101
  4. ARICEPT [Suspect]
     Route: 048
     Dates: start: 20100101
  5. TEMAZEPAM [Suspect]
     Indication: INSOMNIA
     Dosage: 20MG PER DAY
     Route: 048
     Dates: start: 20091230, end: 20100101
  6. TEMAZEPAM [Suspect]
     Route: 048
     Dates: start: 20100101
  7. ZAPONEX [Suspect]
     Indication: PSYCHOTIC DISORDER
     Dosage: 12.5MG PER DAY
     Route: 048
     Dates: start: 20100118, end: 20100118
  8. ATENOLOL [Concomitant]
     Dosage: 25MG PER DAY
     Route: 048
  9. CLOPIDOGREL [Concomitant]
     Dosage: 75MG PER DAY
     Route: 048
  10. LISINOPRIL [Concomitant]
     Indication: HYPERTENSION
     Dosage: 2.5MG PER DAY
     Route: 048

REACTIONS (3)
  - HYPOXIA [None]
  - SOMNOLENCE [None]
  - UNRESPONSIVE TO STIMULI [None]
